FAERS Safety Report 10416967 (Version 1)
Quarter: 2014Q3

REPORT INFORMATION
  Report Type: Spontaneous
  Country: NL (occurrence: NL)
  Receive Date: 20140828
  Receipt Date: 20140828
  Transmission Date: 20150326
  Serious: Yes (Life-Threatening, Hospitalization)
  Sender: FDA-Public Use
  Company Number: NL-ASTRAZENECA-2014SE63634

PATIENT
  Age: 42 Year
  Sex: Female

DRUGS (6)
  1. DULOXETINE [Suspect]
     Active Substance: DULOXETINE
  2. QUETIAPINE [Suspect]
     Active Substance: QUETIAPINE
     Route: 048
  3. INSULIN [Suspect]
     Active Substance: INSULIN NOS
  4. SUCCINYLCHOLINE (NON-AZ DRUG) [Suspect]
     Active Substance: SUCCINYLCHOLINE
     Indication: NEUROMUSCULAR BLOCKING THERAPY
     Dosage: 1.2 MG/KG
  5. ETOMIDATE. [Concomitant]
     Active Substance: ETOMIDATE
     Indication: ELECTROCONVULSIVE THERAPY
  6. FLURAZEPAM [Suspect]
     Active Substance: FLURAZEPAM\FLURAZEPAM HYDROCHLORIDE

REACTIONS (4)
  - Self-medication [None]
  - Ventricular fibrillation [Recovered/Resolved]
  - Hyperkalaemia [Recovered/Resolved]
  - Neuroleptic malignant syndrome [Recovering/Resolving]
